FAERS Safety Report 25706301 (Version 3)
Quarter: 2025Q4

REPORT INFORMATION
  Report Type: Report from Study
  Country: EU (occurrence: EU)
  Receive Date: 20250820
  Receipt Date: 20251208
  Transmission Date: 20260117
  Serious: Yes (Other)
  Sender: ALEXION PHARMACEUTICALS
  Company Number: EU-ASTRAZENECA-202508GLO009016DE

PATIENT
  Age: 68 Year
  Sex: Female
  Weight: 64 kg

DRUGS (4)
  1. DURVALUMAB [Suspect]
     Active Substance: DURVALUMAB
     Indication: Hepatocellular carcinoma
     Dosage: 1500 MILLIGRAM
     Dates: start: 20250409, end: 20251113
  2. GEMCITABINE [Suspect]
     Active Substance: GEMCITABINE
     Indication: Hepatocellular carcinoma
     Dosage: 1700 MILLIGRAM
     Route: 065
     Dates: start: 20250409, end: 20250911
  3. CISPLATIN [Suspect]
     Active Substance: CISPLATIN
     Indication: Hepatocellular carcinoma
     Dosage: 25 MILLIGRAM/SQ. METER
     Route: 065
     Dates: start: 20250409, end: 20250430
  4. CISPLATIN [Suspect]
     Active Substance: CISPLATIN
     Dosage: 31 MILLIGRAM/SQ. METER
     Route: 065
     Dates: start: 20250506, end: 20250725

REACTIONS (6)
  - Polyneuropathy [Not Recovered/Not Resolved]
  - Hyperhidrosis [Recovering/Resolving]
  - Fatigue [Not Recovered/Not Resolved]
  - Cystitis [Recovering/Resolving]
  - Diarrhoea [Not Recovered/Not Resolved]
  - Fall [Recovered/Resolved]

NARRATIVE: CASE EVENT DATE: 20250807
